FAERS Safety Report 16401903 (Version 1)
Quarter: 2019Q2

REPORT INFORMATION
  Report Type: Spontaneous
  Country: CA (occurrence: CA)
  Receive Date: 20190607
  Receipt Date: 20190607
  Transmission Date: 20190711
  Serious: Yes (Death)
  Sender: FDA-Public Use
  Company Number: CA-TEVA-2019-CA-1059333

PATIENT

DRUGS (3)
  1. IMMUNE GLOBULIN NOS [Suspect]
     Active Substance: IMMUNE GLOBULIN NOS
     Indication: GUILLAIN-BARRE SYNDROME
     Route: 042
  2. MYCOPHENOLATE MOFETIL. [Suspect]
     Active Substance: MYCOPHENOLATE MOFETIL
     Indication: GUILLAIN-BARRE SYNDROME
     Route: 065
  3. PREDNISONE. [Suspect]
     Active Substance: PREDNISONE
     Indication: GUILLAIN-BARRE SYNDROME
     Route: 065

REACTIONS (3)
  - Death [Fatal]
  - Hepatitis B reactivation [Fatal]
  - Acute hepatic failure [Fatal]
